FAERS Safety Report 7942025-5 (Version None)
Quarter: 2011Q4

REPORT INFORMATION
  Report Type: 
  Country: None (occurrence: None)
  Receive Date: 20111128
  Receipt Date: 20111117
  Transmission Date: 20120403
  Serious: Yes (Other)
  Sender: FDA-Public Use
  Company Number: US-BAYER-2011-040259

PATIENT
  Age: 32 Year
  Sex: Female
  Weight: 55.782 kg

DRUGS (6)
  1. DULCOLAX [DOCUSATE SODIUM] [Concomitant]
     Dosage: UNK UNK, QD
  2. ZELNORM [Concomitant]
     Dosage: 5 MG, BID
     Route: 048
  3. LIBRAX [Concomitant]
     Dosage: UNK UNK, QD
  4. YASMIN [Suspect]
     Indication: CONTRACEPTION
     Dosage: UNK
     Dates: start: 20040801, end: 20050901
  5. GLUCOSAMINE [Concomitant]
     Dosage: UNK UNK, QD
     Route: 048
  6. MULTI-VITAMIN [Concomitant]
     Dosage: UNK UNK, QD
     Route: 048

REACTIONS (8)
  - CHOLECYSTITIS CHRONIC [None]
  - BILIARY DYSKINESIA [None]
  - ANHEDONIA [None]
  - GALLBLADDER INJURY [None]
  - ANXIETY [None]
  - GENERAL PHYSICAL HEALTH DETERIORATION [None]
  - PAIN [None]
  - EMOTIONAL DISTRESS [None]
